FAERS Safety Report 7945176-4 (Version None)
Quarter: 2011Q4

REPORT INFORMATION
  Report Type: 
  Country: None (occurrence: None)
  Receive Date: 20111129
  Receipt Date: 20111124
  Transmission Date: 20120403
  Serious: Yes (Hospitalization)
  Sender: FDA-Public Use
  Company Number: DE-SANOFI-AVENTIS-2011SA077524

PATIENT
  Age: 73 Year
  Sex: Male
  Weight: 90 kg

DRUGS (6)
  1. ARAVA [Suspect]
     Route: 048
     Dates: start: 20111010, end: 20111012
  2. ACETYLSALICYLIC ACID SRT [Concomitant]
  3. MIRTAZAPINE [Concomitant]
  4. GABAPENTIN [Concomitant]
  5. ARAVA [Suspect]
     Route: 048
     Dates: start: 20111013, end: 20111111
  6. BUPROPION HCL [Concomitant]

REACTIONS (12)
  - EPILEPSY [None]
  - CEREBROVASCULAR ACCIDENT [None]
  - SLEEP DISORDER [None]
  - SWELLING FACE [None]
  - FATIGUE [None]
  - APHASIA [None]
  - HEADACHE [None]
  - DIZZINESS POSTURAL [None]
  - HYPOAESTHESIA [None]
  - TINNITUS [None]
  - DYSPEPSIA [None]
  - PERFORMANCE STATUS DECREASED [None]
